FAERS Safety Report 15278975 (Version 1)
Quarter: 2018Q4

REPORT INFORMATION
  Report Type: Spontaneous
  Country: GB (occurrence: GB)
  Receive Date: 20180815
  Receipt Date: 20180815
  Transmission Date: 20190204
  Serious: Yes (Other)
  Sender: FDA-Public Use
  Company Number: GB-TEVA-2018-GB-940931

PATIENT
  Sex: Male

DRUGS (1)
  1. ACICLOVIR 5% W/W CREAM [Suspect]
     Active Substance: ACYCLOVIR
     Route: 065

REACTIONS (3)
  - Lip swelling [Unknown]
  - Discomfort [Unknown]
  - Scab [Unknown]
